FAERS Safety Report 9925558 (Version 2)
Quarter: 2014Q2

REPORT INFORMATION
  Report Type: Spontaneous
  Country: US (occurrence: US)
  Receive Date: 20140226
  Receipt Date: 20140414
  Transmission Date: 20141212
  Serious: Yes (Death)
  Sender: FDA-Public Use
  Company Number: US-BRISTOL-MYERS SQUIBB COMPANY-20266326

PATIENT
  Age: 72 Year
  Sex: Male

DRUGS (1)
  1. ELIQUIS [Suspect]
     Dates: start: 201310

REACTIONS (1)
  - Death [Fatal]
